FAERS Safety Report 7842052-2 (Version None)
Quarter: 2011Q4

REPORT INFORMATION
  Report Type: 
  Country: None (occurrence: None)
  Receive Date: 20111025
  Receipt Date: 20111022
  Transmission Date: 20120403
  Serious: Yes (Life-Threatening)
  Sender: FDA-Public Use
  Company Number: PHHY2011TR93637

PATIENT

DRUGS (1)
  1. FORADIL COMBI [Suspect]

REACTIONS (1)
  - SUICIDE ATTEMPT [None]
